FAERS Safety Report 4681151-3 (Version None)
Quarter: 2005Q2

REPORT INFORMATION
  Report Type: 
  Country: None (occurrence: None)
  Receive Date: 20050602
  Receipt Date: 20050602
  Transmission Date: 20051028
  Serious: Yes (Disabling)
  Sender: FDA-Public Use
  Company Number: None

PATIENT
  Age: 64 Year
  Sex: Female
  Weight: 92.9874 kg

DRUGS (1)
  1. VIAGRA [Suspect]
     Dosage: SINGLE PILL  AS NEEDED ORAL
     Route: 048
     Dates: start: 20041231, end: 20041231

REACTIONS (4)
  - BLINDNESS UNILATERAL [None]
  - CHROMATOPSIA [None]
  - PAPILLOEDEMA [None]
  - VISION BLURRED [None]
